FAERS Safety Report 9308986 (Version 1)
Quarter: 2013Q2

REPORT INFORMATION
  Report Type: Report from Study
  Country: US (occurrence: US)
  Receive Date: 20130524
  Receipt Date: 20130524
  Transmission Date: 20140414
  Serious: Yes (Other)
  Sender: FDA-Public Use
  Company Number: US-US-EMD SERONO, INC.-7212814

PATIENT
  Sex: Female

DRUGS (2)
  1. REBIF [Suspect]
     Indication: PRODUCT USED FOR UNKNOWN INDICATION
     Route: 058
     Dates: start: 20111027, end: 201212
  2. REBIF [Suspect]
     Route: 058
     Dates: start: 201303

REACTIONS (2)
  - Osteoarthritis [Recovered/Resolved]
  - Injection site pain [Not Recovered/Not Resolved]
